FAERS Safety Report 8355776-8 (Version None)
Quarter: 2012Q2

REPORT INFORMATION
  Report Type: 
  Country: None (occurrence: None)
  Receive Date: 20120510
  Receipt Date: 20120427
  Transmission Date: 20120825
  Serious: Yes (Life-Threatening, Hospitalization)
  Sender: FDA-Public Use
  Company Number: AUR-APL-2012-02031

PATIENT
  Age: 42 Year
  Sex: Female

DRUGS (12)
  1. METHOTREXATE [Suspect]
     Indication: PRODUCT USED FOR UNKNOWN INDICATION
     Dosage: 3.5714 MG (25 MG, 1 IN 1 WK), ORAL
     Route: 048
  2. OMEPRAZOLE [Suspect]
     Indication: PRODUCT USED FOR UNKNOWN INDICATION
     Dosage: 40 MG (20 MG, 2 IN 1 D),ORAL
     Route: 048
  3. BENZYDAMINE (BENZYDAMINE) [Concomitant]
  4. GABAPENTIN [Suspect]
     Indication: PRODUCT USED FOR UNKNOWN INDICATION
     Dosage: 2400 MG (600 MG,4 IN 1 D),ORAL
     Route: 048
  5. SULFASALAZINE [Concomitant]
     Indication: PRODUCT USED FOR UNKNOWN INDICATION
     Dosage: (500 MG),ORAL
     Route: 048
  6. FLOXACILLIN SODIUM [Concomitant]
  7. SCHERIPROCT (SCHERIPROCT N /00212301/) [Concomitant]
  8. METRONIDAZOLE [Concomitant]
  9. HYDROXYCHLOROQUINE SULFATE [Suspect]
     Indication: RHEUMATOID ARTHRITIS
     Dosage: 400 MG (400 MG, 1 IN 1 D), ORAL
     Route: 048
  10. MICONAZOLE (MICONAZOLE) [Concomitant]
  11. VENLAFAXINE [Suspect]
     Indication: PRODUCT USED FOR UNKNOWN INDICATION
     Dosage: 150 MG (75 MG,2 IN 1 D),ORAL
     Route: 048
  12. NYSTATIN [Concomitant]

REACTIONS (7)
  - FULL BLOOD COUNT ABNORMAL [None]
  - ACUTE MYELOID LEUKAEMIA [None]
  - THROMBOCYTOPENIA [None]
  - HAEMATEMESIS [None]
  - CONTUSION [None]
  - ABDOMINAL PAIN [None]
  - DIARRHOEA [None]
